FAERS Safety Report 13951600 (Version 1)
Quarter: 2017Q3

REPORT INFORMATION
  Report Type: Spontaneous
  Country: None (occurrence: AT)
  Receive Date: 20170908
  Receipt Date: 20170908
  Transmission Date: 20171128
  Serious: Yes (Life-Threatening, Hospitalization)
  Sender: FDA-Public Use
  Company Number: AT-LABORATOIRE HRA PHARMA-2025786

PATIENT
  Age: 78 Year
  Sex: Male

DRUGS (1)
  1. METOPIRONE [Suspect]
     Active Substance: METYRAPONE
     Route: 048
     Dates: start: 20170523, end: 20170613

REACTIONS (9)
  - Respiratory alkalosis [None]
  - Pneumocystis jirovecii pneumonia [None]
  - Cough [None]
  - C-reactive protein increased [None]
  - Lung infiltration [None]
  - Respiratory failure [None]
  - Acute respiratory distress syndrome [None]
  - Cardiac arrest [None]
  - Dyspnoea [None]
